FAERS Safety Report 8234444-7 (Version None)
Quarter: 2012Q1

REPORT INFORMATION
  Report Type: 
  Country: None (occurrence: None)
  Receive Date: 20120321
  Receipt Date: 20120314
  Transmission Date: 20120608
  Serious: Yes (Hospitalization)
  Sender: FDA-Public Use
  Company Number: 2012SP013827

PATIENT
  Age: 50 Year
  Sex: Female

DRUGS (2)
  1. SAPHRIS [Suspect]
     Indication: PSYCHOTIC DISORDER
     Dosage: 5 MG; 10 MG; 5 MG;
     Dates: start: 20100803
  2. SAPHRIS [Suspect]
     Indication: PSYCHOTIC DISORDER
     Dosage: 5 MG; 10 MG; 5 MG;
     Dates: start: 20120101

REACTIONS (4)
  - MENTAL DISORDER [None]
  - DISORIENTATION [None]
  - NERVOUSNESS [None]
  - FEELING ABNORMAL [None]
